FAERS Safety Report 21455313 (Version 2)
Quarter: 2022Q4

REPORT INFORMATION
  Report Type: Spontaneous
  Country: US (occurrence: US)
  Receive Date: 20221014
  Receipt Date: 20221107
  Transmission Date: 20230113
  Serious: No
  Sender: FDA-Public Use
  Company Number: US-BRISTOL-MYERS SQUIBB COMPANY-2022-120509

PATIENT
  Age: 81 Year
  Sex: Male
  Weight: 72.57 kg

DRUGS (5)
  1. ELIQUIS [Suspect]
     Active Substance: APIXABAN
     Indication: Cerebrovascular accident prophylaxis
     Route: 065
     Dates: start: 20210301, end: 20221012
  2. ELIQUIS [Suspect]
     Active Substance: APIXABAN
     Indication: Myocardial infarction
  3. METOPROLOL SUCCINATE [Concomitant]
     Active Substance: METOPROLOL SUCCINATE
     Indication: Product used for unknown indication
     Dosage: 25
     Route: 065
     Dates: start: 20210713, end: 20211201
  4. SOTALOL [Concomitant]
     Active Substance: SOTALOL
     Indication: Product used for unknown indication
     Dosage: 80
     Route: 065
     Dates: start: 20210304
  5. SOTALOL [Concomitant]
     Active Substance: SOTALOL
     Route: 065
     Dates: start: 20210622

REACTIONS (3)
  - Confusional state [Not Recovered/Not Resolved]
  - Muscular weakness [Not Recovered/Not Resolved]
  - Visual impairment [Not Recovered/Not Resolved]

NARRATIVE: CASE EVENT DATE: 20220323
